FAERS Safety Report 17380376 (Version 1)
Quarter: 2020Q1

REPORT INFORMATION
  Report Type: Report from Study
  Country: FR (occurrence: FR)
  Receive Date: 20200206
  Receipt Date: 20200206
  Transmission Date: 20200409
  Serious: Yes (Other)
  Sender: FDA-Public Use
  Company Number: PHHY2016FR016211

PATIENT
  Age: 49 Year
  Sex: Female

DRUGS (2)
  1. FAMPYRA [Concomitant]
     Active Substance: DALFAMPRIDINE
     Indication: PRODUCT USED FOR UNKNOWN INDICATION
     Dosage: UNK
     Route: 065
     Dates: start: 20160324, end: 20161014
  2. GILENYA [Suspect]
     Active Substance: FINGOLIMOD HYDROCHLORIDE
     Indication: MULTIPLE SCLEROSIS
     Dosage: QD
     Route: 048
     Dates: start: 20150615

REACTIONS (18)
  - Feeling abnormal [Recovered/Resolved]
  - Paraesthesia [Unknown]
  - Feeling drunk [Recovered/Resolved]
  - Skin lesion [Recovered/Resolved]
  - Pain [Unknown]
  - Asthenia [Unknown]
  - Insomnia [Unknown]
  - Gamma-glutamyltransferase increased [Unknown]
  - Injury [Recovered/Resolved]
  - Lymphopenia [Unknown]
  - Headache [Recovered/Resolved]
  - Hot flush [Unknown]
  - Sleep disorder [Unknown]
  - Hypothyroidism [Unknown]
  - Concomitant disease aggravated [Recovered/Resolved]
  - White blood cell count decreased [Unknown]
  - Tinnitus [Unknown]
  - Depression [Unknown]

NARRATIVE: CASE EVENT DATE: 20150616
